FAERS Safety Report 10361794 (Version 1)
Quarter: 2014Q3

REPORT INFORMATION
  Report Type: Spontaneous
  Country: ES (occurrence: ES)
  Receive Date: 20140805
  Receipt Date: 20140805
  Transmission Date: 20150326
  Serious: Yes (Other)
  Sender: FDA-Public Use
  Company Number: ES-MERCK-1408ESP000032

PATIENT
  Age: 90 Year
  Sex: Female

DRUGS (2)
  1. INVANZ [Suspect]
     Active Substance: ERTAPENEM SODIUM
     Indication: SOFT TISSUE INFECTION
     Dosage: 1 G, QD
  2. INVANZ [Suspect]
     Active Substance: ERTAPENEM SODIUM
     Indication: SKIN INFECTION

REACTIONS (1)
  - Confusional state [Recovered/Resolved]
